FAERS Safety Report 23125657 (Version 1)
Quarter: 2023Q4

REPORT INFORMATION
  Report Type: Spontaneous
  Country: US (occurrence: US)
  Receive Date: 20231030
  Receipt Date: 20231030
  Transmission Date: 20240110
  Serious: No
  Sender: FDA-Public Use
  Company Number: US-SANOFI-01813713

PATIENT
  Age: 56 Year
  Sex: Female

DRUGS (1)
  1. TAXOTERE [Suspect]
     Active Substance: DOCETAXEL
     Dosage: UNK

REACTIONS (6)
  - Skin exfoliation [Unknown]
  - Eye pain [Unknown]
  - Eye irritation [Unknown]
  - Erythema [Unknown]
  - Pain [Unknown]
  - Occupational exposure to product [Unknown]
